FAERS Safety Report 16635074 (Version 2)
Quarter: 2021Q1

REPORT INFORMATION
  Report Type: Spontaneous
  Country: CA (occurrence: CA)
  Receive Date: 20190726
  Receipt Date: 20210121
  Transmission Date: 20210419
  Serious: Yes (Hospitalization)
  Sender: FDA-Public Use
  Company Number: CA-ROCHE-2364120

PATIENT
  Age: 7 Year
  Sex: Female

DRUGS (8)
  1. SINGULAIR [Concomitant]
     Active Substance: MONTELUKAST SODIUM
     Indication: ASTHMA
     Route: 048
     Dates: start: 201711
  2. CORTEF [Concomitant]
     Active Substance: HYDROCORTISONE
     Indication: ADRENAL INSUFFICIENCY
     Route: 048
     Dates: start: 201710
  3. XOLAIR [Suspect]
     Active Substance: OMALIZUMAB
     Indication: ASTHMA
     Route: 058
     Dates: start: 20180227
  4. RUPALL [Concomitant]
     Active Substance: RUPATADINE FUMARATE
     Indication: HYPERSENSITIVITY
     Route: 048
     Dates: start: 201707
  5. XOLAIR [Suspect]
     Active Substance: OMALIZUMAB
     Route: 058
  6. VENTOLIN [Concomitant]
     Active Substance: ALBUTEROL SULFATE
     Indication: ASTHMA
     Route: 055
     Dates: start: 2013
  7. EPIPEN [Concomitant]
     Active Substance: EPINEPHRINE
     Indication: PRODUCT USED FOR UNKNOWN INDICATION
     Route: 065
  8. SYMBICORT [Concomitant]
     Active Substance: BUDESONIDE\FORMOTEROL FUMARATE DIHYDRATE
     Indication: ASTHMA
     Route: 055
     Dates: start: 201711

REACTIONS (4)
  - Influenza [Unknown]
  - Dyspnoea [Unknown]
  - Asthma [Unknown]
  - Pyrexia [Unknown]

NARRATIVE: CASE EVENT DATE: 20190324
